FAERS Safety Report 21316725 (Version 1)
Quarter: 2022Q3

REPORT INFORMATION
  Report Type: Spontaneous
  Country: US (occurrence: US)
  Receive Date: 20220911
  Receipt Date: 20220911
  Transmission Date: 20221027
  Serious: No
  Sender: FDA-Public Use
  Company Number: US-SA-SAC20220823000107

PATIENT
  Sex: Female

DRUGS (12)
  1. DUPIXENT [Suspect]
     Active Substance: DUPILUMAB
     Indication: Dermatitis atopic
     Dosage: 300 MG, QOW
     Route: 058
     Dates: start: 2019
  2. PFIZERPEN [Concomitant]
     Active Substance: PENICILLIN G POTASSIUM
  3. CELEBREX [Concomitant]
     Active Substance: CELECOXIB
  4. CLOBETASOL [Concomitant]
     Active Substance: CLOBETASOL
  5. HYDROCHLOROTHIAZIDE\LOSARTAN [Concomitant]
     Active Substance: HYDROCHLOROTHIAZIDE\LOSARTAN
  6. POTASSIUM CHLORIDE [Concomitant]
     Active Substance: POTASSIUM CHLORIDE
  7. ROSUVASTATIN CALCIUM [Concomitant]
     Active Substance: ROSUVASTATIN CALCIUM
  8. MOTRIN IB [Concomitant]
     Active Substance: IBUPROFEN
  9. OMEGA 3 FISH OIL + VITAMIN D [Concomitant]
  10. DESONIDE [Concomitant]
     Active Substance: DESONIDE
  11. VITAMINS [Concomitant]
     Active Substance: VITAMINS
  12. VITAMINS [Concomitant]
     Active Substance: VITAMINS

REACTIONS (1)
  - Rash [Unknown]
